FAERS Safety Report 4621379-1 (Version None)
Quarter: 2005Q1

REPORT INFORMATION
  Report Type: 
  Country: None (occurrence: None)
  Receive Date: 20050325
  Receipt Date: 20050310
  Transmission Date: 20050727
  Serious: Yes (Other)
  Sender: FDA-Public Use
  Company Number: 2005-CN-00527CN

PATIENT
  Age: 61 Year
  Sex: Female

DRUGS (2)
  1. ATROVENT [Suspect]
     Indication: COUGH
     Dosage: 12 PUF (20 MG, 3 PUFFS X 4/DAY WITH AEROCHAMBER)
  2. PULMICORT [Concomitant]

REACTIONS (3)
  - INSOMNIA [None]
  - TACHYCARDIA [None]
  - TREMOR [None]
